FAERS Safety Report 14413628 (Version 1)
Quarter: 2018Q1

REPORT INFORMATION
  Report Type: Spontaneous
  Country: SE (occurrence: SE)
  Receive Date: 20180119
  Receipt Date: 20180119
  Transmission Date: 20180509
  Serious: Yes (Death)
  Sender: FDA-Public Use
  Company Number: SE-TEVA-2018-SE-846653

PATIENT
  Age: 90 Year
  Sex: Male

DRUGS (1)
  1. BICALUTAMIDE. [Suspect]
     Active Substance: BICALUTAMIDE
     Route: 048

REACTIONS (1)
  - Pulmonary fibrosis [Fatal]
